FAERS Safety Report 14730983 (Version 2)
Quarter: 2018Q2

REPORT INFORMATION
  Report Type: Spontaneous
  Country: CN (occurrence: CN)
  Receive Date: 20180406
  Receipt Date: 20180604
  Transmission Date: 20180711
  Serious: Yes (Hospitalization, Other)
  Sender: FDA-Public Use
  Company Number: CN-BAUSCH-BL-2018-009398

PATIENT
  Age: 53 Year
  Sex: Male
  Weight: 70 kg

DRUGS (7)
  1. CEFOPERAZONE SODIUM [Suspect]
     Active Substance: CEFOPERAZONE SODIUM
     Indication: PRODUCT USED FOR UNKNOWN INDICATION
     Route: 041
     Dates: start: 20160429, end: 20160505
  2. METRONIDAZOLE. [Suspect]
     Active Substance: METRONIDAZOLE
     Indication: PRODUCT USED FOR UNKNOWN INDICATION
     Dosage: INTRAVENOUS INFUSION
     Route: 041
     Dates: start: 20160429, end: 20160429
  3. CILASTATIN SODIUM/IMIPENEM [Suspect]
     Active Substance: CILASTATIN SODIUM\IMIPENEM
     Indication: PANCREATITIS ACUTE
     Dosage: INTRAVENOUS INFUSION; EVERY 6 HOURS?1 MONTH 7 DAYS
     Route: 041
     Dates: start: 20160323, end: 20160429
  4. FUROSEMIDE. [Suspect]
     Active Substance: FUROSEMIDE
     Indication: PRODUCT USED FOR UNKNOWN INDICATION
     Route: 042
     Dates: start: 20160323, end: 20160505
  5. VANCOMYCIN [Suspect]
     Active Substance: VANCOMYCIN
     Indication: PANCREATITIS ACUTE
     Route: 042
     Dates: start: 20160325, end: 20160424
  6. FUROSEMIDE. [Suspect]
     Active Substance: FUROSEMIDE
     Route: 042
     Dates: start: 20160328, end: 2016
  7. VANCOMYCIN [Suspect]
     Active Substance: VANCOMYCIN
     Dosage: EVERY 12 HOURS
     Route: 042
     Dates: start: 201603

REACTIONS (3)
  - Toxicity to various agents [Recovered/Resolved]
  - Tubulointerstitial nephritis [Recovered/Resolved]
  - Drug hypersensitivity [Unknown]

NARRATIVE: CASE EVENT DATE: 20160328
